FAERS Safety Report 6268938-0 (Version None)
Quarter: 2009Q3

REPORT INFORMATION
  Report Type: 
  Country: None (occurrence: None)
  Receive Date: 20090714
  Receipt Date: 20090714
  Transmission Date: 20100115
  Serious: Yes (Hospitalization, Disabling)
  Sender: FDA-Public Use
  Company Number: None

PATIENT
  Age: 56 Year
  Sex: Female
  Weight: 54.4316 kg

DRUGS (4)
  1. MAXALT [Suspect]
     Indication: MIGRAINE
     Dosage: 10 MG PRN PO SEVERAL YEARS - 4 OR5?
     Route: 048
  2. FOSAMAX [Concomitant]
  3. WELLBUTRIN [Concomitant]
  4. ORACEA [Concomitant]

REACTIONS (2)
  - ARTERIOSPASM CORONARY [None]
  - MYOCARDIAL INFARCTION [None]
